FAERS Safety Report 4273110-X (Version None)
Quarter: 2004Q1

REPORT INFORMATION
  Report Type: 
  Country: None (occurrence: None)
  Receive Date: 20040116
  Receipt Date: 20010824
  Transmission Date: 20041129
  Serious: Yes (Other)
  Sender: FDA-Public Use
  Company Number: US-GLAXOSMITHKLINE-A0352290A

PATIENT
  Sex: Female
  Weight: 59.1 kg

DRUGS (7)
  1. PAXIL [Suspect]
     Dosage: 20MG PER DAY
     Dates: start: 20001121, end: 20010601
  2. ANTABUSE [Concomitant]
     Dosage: 250MG PER DAY
     Dates: start: 20001121
  3. TRAZODONE HCL [Concomitant]
     Indication: INSOMNIA
     Dosage: 50MG PER DAY
     Route: 065
     Dates: start: 20001121
  4. NALTREXONE HCL [Concomitant]
  5. HYDROCODONE APAP [Concomitant]
  6. CARISOPRODOL [Concomitant]
  7. WELLBUTRIN [Concomitant]

REACTIONS (39)
  - ABDOMINAL DISCOMFORT [None]
  - ACCIDENT [None]
  - AGGRESSION [None]
  - AGITATION [None]
  - ANOREXIA [None]
  - ASTHENIA [None]
  - ATAXIA [None]
  - CONFUSIONAL STATE [None]
  - COORDINATION ABNORMAL [None]
  - DELUSION [None]
  - DIARRHOEA [None]
  - DISTURBANCE IN ATTENTION [None]
  - DIZZINESS [None]
  - DRUG WITHDRAWAL SYNDROME [None]
  - FALL [None]
  - FATIGUE [None]
  - GAIT DISTURBANCE [None]
  - HAND FRACTURE [None]
  - HYPERHIDROSIS [None]
  - INFLUENZA [None]
  - IRRITABILITY [None]
  - JOINT INJURY [None]
  - LETHARGY [None]
  - LIBIDO DECREASED [None]
  - MALAISE [None]
  - MEMORY IMPAIRMENT [None]
  - MUSCLE CRAMP [None]
  - MYALGIA [None]
  - NAUSEA [None]
  - NIGHTMARE [None]
  - PARAESTHESIA [None]
  - PYREXIA [None]
  - SENSORY DISTURBANCE [None]
  - SLEEP DISORDER [None]
  - SUICIDAL IDEATION [None]
  - TENDON RUPTURE [None]
  - TREMOR [None]
  - VERTIGO [None]
  - VOMITING [None]
